FAERS Safety Report 8274999-X (Version None)
Quarter: 2012Q2

REPORT INFORMATION
  Report Type: 
  Country: None (occurrence: None)
  Receive Date: 20120411
  Receipt Date: 20120329
  Transmission Date: 20120825
  Serious: Yes (Hospitalization)
  Sender: FDA-Public Use
  Company Number: MX-ROCHE-1056755

PATIENT
  Age: 24 Year
  Sex: Male

DRUGS (4)
  1. MABTHERA [Suspect]
     Indication: SYSTEMIC LUPUS ERYTHEMATOSUS
     Route: 042
     Dates: start: 20120209, end: 20120209
  2. KIKUZUBAM [Suspect]
     Indication: SYSTEMIC LUPUS ERYTHEMATOSUS
     Route: 042
     Dates: start: 20120221, end: 20120222
  3. CYCLOPHOSPHAMIDE [Concomitant]
     Indication: SYSTEMIC LUPUS ERYTHEMATOSUS
     Route: 058
     Dates: start: 20120208
  4. PREDNISONE TAB [Concomitant]
     Indication: SYSTEMIC LUPUS ERYTHEMATOSUS

REACTIONS (6)
  - THROMBOCYTOPENIA [None]
  - MALAISE [None]
  - PYREXIA [None]
  - GASTROINTESTINAL DISORDER [None]
  - OEDEMA PERIPHERAL [None]
  - RASH MACULAR [None]
